FAERS Safety Report 24893804 (Version 1)
Quarter: 2025Q1

REPORT INFORMATION
  Report Type: Spontaneous
  Country: US (occurrence: None)
  Receive Date: 20250127
  Receipt Date: 20250127
  Transmission Date: 20250408
  Serious: Yes (Death)
  Sender: FDA-CTU
  Company Number: None

PATIENT
  Age: 76 Year
  Sex: Male
  Weight: 152 kg

DRUGS (15)
  1. HUMIRA [Suspect]
     Active Substance: ADALIMUMAB
     Indication: Eczema
     Route: 058
     Dates: start: 20211011, end: 20250108
  2. HUMIRA [Suspect]
     Active Substance: ADALIMUMAB
     Indication: Psoriasis
  3. HUMIRA [Suspect]
     Active Substance: ADALIMUMAB
     Indication: Psoriasis
  4. HUMIRA [Suspect]
     Active Substance: ADALIMUMAB
     Indication: Psoriasis
  5. ASCORBIC ACID GRANULES 1000GM [Concomitant]
  6. ATENOLOL [Concomitant]
     Active Substance: ATENOLOL
  7. CEFDINIR [Concomitant]
     Active Substance: CEFDINIR
  8. CEFDINIR [Concomitant]
     Active Substance: CEFDINIR
  9. COUMADIN [Concomitant]
     Active Substance: WARFARIN SODIUM
  10. DILTIAZEM 60MG [Concomitant]
  11. DULCOLAX (BISACODYL) [Concomitant]
     Active Substance: BISACODYL
  12. FOLIC ACID 1 MG [Concomitant]
  13. HYDROXYCHLOROQUINE [Concomitant]
     Active Substance: HYDROXYCHLOROQUINE
  14. LANTUS SOLOSTAR [Concomitant]
     Active Substance: INSULIN GLARGINE
  15. METFORMIN [Concomitant]
     Active Substance: METFORMIN HYDROCHLORIDE

REACTIONS (1)
  - Death [None]

NARRATIVE: CASE EVENT DATE: 20250108
